FAERS Safety Report 24935033 (Version 1)
Quarter: 2025Q1

REPORT INFORMATION
  Report Type: Spontaneous
  Country: CA (occurrence: CA)
  Receive Date: 20250206
  Receipt Date: 20250206
  Transmission Date: 20250409
  Serious: Yes (Hospitalization, Other)
  Sender: AUROBINDO
  Company Number: CA-AUROBINDO-AUR-APL-2025-005758

PATIENT
  Age: 2 Day
  Sex: Male
  Weight: 3 kg

DRUGS (2)
  1. CITALOPRAM [Suspect]
     Active Substance: CITALOPRAM
     Indication: Product used for unknown indication
     Dosage: 400 MILLIGRAM, ONCE A DAY
     Route: 048
  2. LABETALOL [Concomitant]
     Active Substance: LABETALOL
     Indication: Product used for unknown indication
     Route: 065

REACTIONS (7)
  - Drug withdrawal syndrome neonatal [Unknown]
  - Encephalopathy [Unknown]
  - Faeces discoloured [Unknown]
  - Infantile spitting up [Unknown]
  - Irritability [Unknown]
  - Seizure [Unknown]
  - Tremor [Unknown]
